FAERS Safety Report 9904460 (Version 1)
Quarter: 2014Q1

REPORT INFORMATION
  Report Type: Report from Study
  Country: CA (occurrence: CA)
  Receive Date: 20140218
  Receipt Date: 20140218
  Transmission Date: 20141002
  Serious: Yes (Other)
  Sender: FDA-Public Use
  Company Number: CA-JNJFOC-20140208501

PATIENT
  Age: 51 Year
  Sex: Male
  Weight: 87.54 kg

DRUGS (2)
  1. GOLIMUMAB [Suspect]
     Indication: PRODUCT USED FOR UNKNOWN INDICATION
     Route: 058
     Dates: start: 201206
  2. METHOTREXATE [Concomitant]
     Route: 065

REACTIONS (1)
  - Squamous cell carcinoma [Recovered/Resolved]
